FAERS Safety Report 11097220 (Version 5)
Quarter: 2015Q2

REPORT INFORMATION
  Report Type: Report from Study
  Country: AU (occurrence: AU)
  Receive Date: 20150507
  Receipt Date: 20150629
  Transmission Date: 20150821
  Serious: Yes (Death, Hospitalization)
  Sender: FDA-Public Use
  Company Number: AU-MERCK-1505AUS000954

PATIENT
  Age: 62 Year
  Sex: Female

DRUGS (14)
  1. PEMBROLIZUMAB. [Suspect]
     Active Substance: PEMBROLIZUMAB
     Dosage: 2 MG/KG, Q3W
     Route: 042
     Dates: start: 20150415, end: 20150415
  2. PEMBROLIZUMAB. [Suspect]
     Active Substance: PEMBROLIZUMAB
     Dosage: 2 MG/KG, Q3W
     Route: 042
     Dates: start: 20150317, end: 20150317
  3. LYRICA [Concomitant]
     Active Substance: PREGABALIN
     Indication: BACK PAIN
     Dosage: 25 MG, BID
     Route: 048
     Dates: start: 201501
  4. TEMAZEPAM. [Concomitant]
     Active Substance: TEMAZEPAM
     Indication: INSOMNIA
     Dosage: TOTAL DAILY DOSE:10 MG, PRN
     Route: 048
     Dates: start: 201412
  5. VITAMIN D [Concomitant]
     Active Substance: CHOLECALCIFEROL
     Indication: ROUTINE HEALTH MAINTENANCE
     Dosage: TOTAL DAILY DOSE: 1 TABLET, QD
     Route: 048
     Dates: start: 201307
  6. PYRIDOSTIGMINE BROMIDE. [Concomitant]
     Active Substance: PYRIDOSTIGMINE BROMIDE
     Indication: DYSPHAGIA
     Dosage: 60 MG, TID
     Route: 048
     Dates: start: 20150306
  7. PEMBROLIZUMAB. [Suspect]
     Active Substance: PEMBROLIZUMAB
     Indication: NON-SMALL CELL LUNG CANCER
     Dosage: 2 MG/KG, Q3W
     Route: 042
     Dates: start: 20150112, end: 20150223
  8. NEXIUM [Concomitant]
     Active Substance: ESOMEPRAZOLE MAGNESIUM
     Indication: GASTROOESOPHAGEAL REFLUX DISEASE
     Dosage: TOTAL DAILY DOSE:40 MG
     Route: 048
     Dates: start: 201409
  9. CLEXANE (ENOXAPARIN SODIUM) [Concomitant]
     Active Substance: ENOXAPARIN SODIUM
     Indication: PROPHYLAXIS
     Dosage: TOTAL DAILY DOSE:80 MG
     Route: 058
     Dates: start: 20141203
  10. PANADOL [Concomitant]
     Active Substance: ACETAMINOPHEN
     Indication: SPINAL PAIN
     Dosage: TOTAL DAILY DOSE: 2 TABLET
     Route: 048
     Dates: start: 201407
  11. MIRTAZAPINE. [Concomitant]
     Active Substance: MIRTAZAPINE
     Indication: ANXIETY
     Dosage: 45 MG, QD
     Route: 048
     Dates: start: 201307
  12. TARGIN [Concomitant]
     Active Substance: NALOXONE HYDROCHLORIDE\OXYCODONE HYDROCHLORIDE
     Indication: SPINAL PAIN
     Dosage: TOTAL DAILY DOSE: 5 MG
     Route: 048
     Dates: start: 201409
  13. OROXINE [Concomitant]
     Active Substance: LEVOTHYROXINE SODIUM
     Indication: HYPERTHYROIDISM
     Dosage: TOTAL DAILY DOSE: 150 MICROGRAMS, FREQUENCY: OTHER
     Route: 048
     Dates: start: 201007
  14. ENDONE [Concomitant]
     Active Substance: OXYCODONE HYDROCHLORIDE
     Indication: SPINAL PAIN
     Dosage: TOTAL DAILY DOSE: 5 MG, PRN
     Route: 048
     Dates: start: 201407

REACTIONS (2)
  - Myopathy [Recovering/Resolving]
  - Malignant neoplasm progression [Fatal]

NARRATIVE: CASE EVENT DATE: 20150407
